FAERS Safety Report 11677902 (Version 1)
Quarter: 2015Q4

REPORT INFORMATION
  Report Type: Spontaneous
  Country: US (occurrence: US)
  Receive Date: 20151028
  Receipt Date: 20151028
  Transmission Date: 20160304
  Serious: No
  Sender: FDA-Public Use
  Company Number: US-BAYER-2015-452130

PATIENT
  Age: 67 Year
  Sex: Female
  Weight: 79.37 kg

DRUGS (10)
  1. SYNTHROID [Concomitant]
     Active Substance: LEVOTHYROXINE SODIUM
     Dosage: UNK
  2. SPIRONOLACTONE. [Concomitant]
     Active Substance: SPIRONOLACTONE
     Dosage: UNK
  3. CLARITIN REDITABS [Suspect]
     Active Substance: LORATADINE
     Indication: PRURITUS
  4. PROTONIX [Concomitant]
     Active Substance: PANTOPRAZOLE SODIUM
     Dosage: UNK
  5. CLARITIN REDITABS [Suspect]
     Active Substance: LORATADINE
     Indication: EAR PRURITUS
     Dosage: 1 DF, QD
     Route: 048
     Dates: start: 20151023
  6. VITAMIN D [Concomitant]
     Active Substance: CHOLECALCIFEROL
     Dosage: UNK
  7. CLARITIN REDITABS [Suspect]
     Active Substance: LORATADINE
     Indication: NASAL PRURITUS
  8. FISH OIL [Concomitant]
     Active Substance: FISH OIL
     Dosage: UNK
  9. EXFORGE [Concomitant]
     Active Substance: AMLODIPINE BESYLATE\VALSARTAN
     Dosage: UNK
  10. VITAMIN B COMPLEX/B12 [B12,VIT PP,B2,B1 HCL] [Concomitant]
     Dosage: UNK

REACTIONS (2)
  - Rash papular [Not Recovered/Not Resolved]
  - Product use issue [Unknown]

NARRATIVE: CASE EVENT DATE: 20151023
